FAERS Safety Report 9347897 (Version 1)
Quarter: 2013Q2

REPORT INFORMATION
  Report Type: Spontaneous
  Country: US (occurrence: None)
  Receive Date: 20130612
  Receipt Date: 20130612
  Transmission Date: 20140414
  Serious: Yes (Life-Threatening, Other)
  Sender: FDA-Public Use
  Company Number: None

PATIENT
  Age: 69 None
  Sex: Female

DRUGS (1)
  1. XARELTO 20 MG [Suspect]
     Indication: THROMBOSIS PROPHYLAXIS
     Dates: start: 20121205, end: 20121216

REACTIONS (1)
  - Transfusion [None]
